FAERS Safety Report 23045566 (Version 5)
Quarter: 2024Q2

REPORT INFORMATION
  Report Type: Report from Study
  Country: JP (occurrence: JP)
  Receive Date: 20231009
  Receipt Date: 20240621
  Transmission Date: 20240715
  Serious: Yes (Life-Threatening)
  Sender: FDA-Public Use
  Company Number: JP-ARGENX-2023-ARGX-JP002603

PATIENT

DRUGS (59)
  1. VYVGART [Suspect]
     Active Substance: EFGARTIGIMOD ALFA-FCAB
     Indication: Myasthenia gravis
     Dosage: 340 MG
     Route: 042
     Dates: start: 20221128, end: 20221205
  2. VYVGART [Suspect]
     Active Substance: EFGARTIGIMOD ALFA-FCAB
     Dosage: 323 MG
     Route: 042
     Dates: start: 20221216, end: 20221216
  3. VYVGART [Suspect]
     Active Substance: EFGARTIGIMOD ALFA-FCAB
     Dosage: 340 MG
     Route: 042
     Dates: start: 20221223, end: 20221223
  4. VYVGART [Suspect]
     Active Substance: EFGARTIGIMOD ALFA-FCAB
     Dosage: 340 MG
     Route: 042
     Dates: start: 20230106, end: 20230120
  5. VYVGART [Suspect]
     Active Substance: EFGARTIGIMOD ALFA-FCAB
     Dosage: 333 MG
     Route: 042
     Dates: start: 20230127, end: 20230127
  6. VYVGART [Suspect]
     Active Substance: EFGARTIGIMOD ALFA-FCAB
     Dosage: 340 MG
     Route: 042
     Dates: start: 20230203, end: 20230224
  7. VYVGART [Suspect]
     Active Substance: EFGARTIGIMOD ALFA-FCAB
     Dosage: 340 MG
     Route: 042
     Dates: start: 20230303, end: 20230324
  8. VYVGART [Suspect]
     Active Substance: EFGARTIGIMOD ALFA-FCAB
     Dosage: 300 MG
     Route: 042
     Dates: start: 20230531, end: 20230607
  9. VYVGART [Suspect]
     Active Substance: EFGARTIGIMOD ALFA-FCAB
     Dosage: 294 MG
     Route: 042
     Dates: start: 20230614, end: 20230614
  10. VYVGART [Suspect]
     Active Substance: EFGARTIGIMOD ALFA-FCAB
     Dosage: 285 MG
     Route: 042
     Dates: start: 20230621, end: 20230621
  11. VYVGART [Suspect]
     Active Substance: EFGARTIGIMOD ALFA-FCAB
     Dosage: 360 MG
     Route: 042
     Dates: start: 20230628, end: 20230706
  12. VYVGART [Suspect]
     Active Substance: EFGARTIGIMOD ALFA-FCAB
     Dosage: 360 MG
     Route: 042
     Dates: start: 20230720, end: 20230720
  13. VYVGART [Suspect]
     Active Substance: EFGARTIGIMOD ALFA-FCAB
     Dosage: 380 MG
     Route: 042
     Dates: start: 20230727, end: 20230727
  14. VYVGART [Suspect]
     Active Substance: EFGARTIGIMOD ALFA-FCAB
     Dosage: 350 MG
     Route: 042
     Dates: start: 20230807, end: 20230828
  15. VYVGART [Suspect]
     Active Substance: EFGARTIGIMOD ALFA-FCAB
     Dosage: 350 MG
     Route: 042
     Dates: start: 20230908, end: 20231006
  16. PREDNISOLONE [Concomitant]
     Active Substance: PREDNISOLONE
     Indication: Myasthenia gravis
     Dosage: 35 MG
     Route: 048
     Dates: start: 201408
  17. PREDNISOLONE [Concomitant]
     Active Substance: PREDNISOLONE
     Dosage: INCREASED TO 35 MG
     Route: 048
     Dates: start: 201408, end: 20140825
  18. PREDNISOLONE [Concomitant]
     Active Substance: PREDNISOLONE
     Dosage: DECREASED FROM 35MG
     Route: 048
     Dates: start: 20140825, end: 20150709
  19. PREDNISOLONE [Concomitant]
     Active Substance: PREDNISOLONE
     Dosage: INCREASED TO 20 MG
     Route: 048
     Dates: start: 20150709, end: 20150903
  20. PREDNISOLONE [Concomitant]
     Active Substance: PREDNISOLONE
     Dosage: DECREASED FROM 20 MG TO 10 MG
     Route: 048
     Dates: start: 20150903, end: 20171005
  21. PREDNISOLONE [Concomitant]
     Active Substance: PREDNISOLONE
     Dosage: INCREASED FROM 10 MG TO 15 MG
     Route: 048
     Dates: start: 20171005, end: 20180104
  22. PREDNISOLONE [Concomitant]
     Active Substance: PREDNISOLONE
     Dosage: DECREASED FROM 15 MG TO 10 MG
     Route: 048
     Dates: start: 20180104, end: 20180920
  23. PREDNISOLONE [Concomitant]
     Active Substance: PREDNISOLONE
     Dosage: INCREASED FROM 10 MG TO 18 MG
     Route: 048
     Dates: start: 20180920, end: 20190122
  24. PREDNISOLONE [Concomitant]
     Active Substance: PREDNISOLONE
     Dosage: DECREASED FROM 18MG
     Route: 048
     Dates: start: 20190122, end: 20190711
  25. PREDNISOLONE [Concomitant]
     Active Substance: PREDNISOLONE
     Dosage: INCREASED TO 18 MG
     Route: 048
     Dates: start: 20190711, end: 20190815
  26. PREDNISOLONE [Concomitant]
     Active Substance: PREDNISOLONE
     Dosage: 18 MG
     Route: 048
     Dates: start: 20190815, end: 20191024
  27. PREDNISOLONE [Concomitant]
     Active Substance: PREDNISOLONE
     Dosage: DECREASED FROM 18 MG TO 10 MG
     Route: 048
     Dates: start: 20191024, end: 20200423
  28. PREDNISOLONE [Concomitant]
     Active Substance: PREDNISOLONE
     Dosage: 10 MG
     Route: 048
     Dates: start: 20200423, end: 20200514
  29. PREDNISOLONE [Concomitant]
     Active Substance: PREDNISOLONE
     Dosage: INCREASED FROM 10 MG TO 17 MG
     Route: 048
     Dates: start: 20200514, end: 20200604
  30. PREDNISOLONE [Concomitant]
     Active Substance: PREDNISOLONE
     Dosage: 17 MG
     Route: 048
     Dates: start: 20200604, end: 20200827
  31. PREDNISOLONE [Concomitant]
     Active Substance: PREDNISOLONE
     Dosage: DECREASED FROM 17 MG TO 9 MG
     Route: 048
     Dates: start: 20200827, end: 20210201
  32. PREDNISOLONE [Concomitant]
     Active Substance: PREDNISOLONE
     Dosage: INCREASED FROM 9 MG TO 15 MG
     Route: 048
     Dates: start: 20210201, end: 20210311
  33. PREDNISOLONE [Concomitant]
     Active Substance: PREDNISOLONE
     Dosage: DECREASED FROM 15 MG TO 10 MG
     Route: 048
     Dates: start: 20210311, end: 20220506
  34. PREDNISOLONE [Concomitant]
     Active Substance: PREDNISOLONE
     Dosage: INCREASED FROM 10 MG TO 15 MG
     Route: 048
     Dates: start: 20220506, end: 20220629
  35. PREDNISOLONE [Concomitant]
     Active Substance: PREDNISOLONE
     Dosage: 15 MG
     Route: 048
     Dates: start: 20220629, end: 202209
  36. PREDNISOLONE [Concomitant]
     Active Substance: PREDNISOLONE
     Dosage: 20 MG
     Route: 048
     Dates: start: 202209, end: 202210
  37. PREDNISOLONE [Concomitant]
     Active Substance: PREDNISOLONE
     Dosage: UNK
     Route: 048
     Dates: start: 202210, end: 202211
  38. PREDNISOLONE [Concomitant]
     Active Substance: PREDNISOLONE
     Dosage: 35 MG
     Route: 048
     Dates: start: 202211, end: 202301
  39. PREDNISOLONE [Concomitant]
     Active Substance: PREDNISOLONE
     Dosage: DECREASED FROM 35 MG TO 25 MG
     Route: 048
     Dates: start: 202301, end: 202302
  40. PREDNISOLONE [Concomitant]
     Active Substance: PREDNISOLONE
     Dosage: 25 MG
     Route: 048
     Dates: start: 202302, end: 202305
  41. PREDNISOLONE [Concomitant]
     Active Substance: PREDNISOLONE
     Dosage: 30 MG
     Route: 048
     Dates: start: 202305, end: 202305
  42. PREDNISOLONE [Concomitant]
     Active Substance: PREDNISOLONE
     Dosage: UNK
     Route: 048
     Dates: start: 202305, end: 202306
  43. PREDNISOLONE [Concomitant]
     Active Substance: PREDNISOLONE
     Dosage: 20 MG
     Route: 048
     Dates: start: 202306, end: 202306
  44. PREDNISOLONE [Concomitant]
     Active Substance: PREDNISOLONE
     Dosage: 17 MG/DAY
     Route: 048
     Dates: start: 20230629, end: 20230718
  45. PREDNISOLONE [Concomitant]
     Active Substance: PREDNISOLONE
     Dosage: 16 MG/DAY
     Route: 048
     Dates: start: 20230719
  46. PREDNISOLONE [Concomitant]
     Active Substance: PREDNISOLONE
     Dosage: 17 MG
     Route: 048
     Dates: start: 202307, end: 202309
  47. PREDNISOLONE [Concomitant]
     Active Substance: PREDNISOLONE
     Dosage: 15 MG
     Route: 048
     Dates: start: 202309
  48. TACROLIMUS [Concomitant]
     Active Substance: TACROLIMUS
     Indication: Myasthenia gravis
     Dosage: 3 MG
     Route: 048
     Dates: start: 202001
  49. TACROLIMUS [Concomitant]
     Active Substance: TACROLIMUS
     Dosage: 3 MG
     Route: 065
     Dates: start: 201901, end: 201908
  50. TACROLIMUS [Concomitant]
     Active Substance: TACROLIMUS
     Dosage: UNK
     Route: 065
     Dates: start: 201908, end: 201912
  51. TACROLIMUS [Concomitant]
     Active Substance: TACROLIMUS
     Dosage: 2 MG
     Route: 065
     Dates: start: 201912, end: 202004
  52. TACROLIMUS [Concomitant]
     Active Substance: TACROLIMUS
     Dosage: UNK
     Route: 065
     Dates: start: 202004, end: 202005
  53. TACROLIMUS [Concomitant]
     Active Substance: TACROLIMUS
     Dosage: 3 MG
     Route: 065
     Dates: start: 202005, end: 202012
  54. TACROLIMUS [Concomitant]
     Active Substance: TACROLIMUS
     Dosage: 3 MG/DAY
     Route: 048
     Dates: start: 20230502
  55. ELDECALCITOL [Concomitant]
     Active Substance: ELDECALCITOL
     Indication: Osteoporosis
     Dosage: 0.75 UG/DAY
     Route: 048
  56. SULFAMETHOXAZOLE\TRIMETHOPRIM [Concomitant]
     Active Substance: SULFAMETHOXAZOLE\TRIMETHOPRIM
     Indication: Prophylaxis
     Dosage: 1 DOSAGE FORM/DAY
     Route: 048
  57. AMINO ACIDS\DEXTROSE\ELECTROLYTES NOS\SOYBEAN OIL\VITAMINS [Concomitant]
     Active Substance: AMINO ACIDS\DEXTROSE\ELECTROLYTES NOS\SOYBEAN OIL\VITAMINS
     Indication: Product used for unknown indication
     Dosage: 200 MG/DAY
  58. RABEPRAZOLE SODIUM [Concomitant]
     Active Substance: RABEPRAZOLE SODIUM
     Indication: Gastrooesophageal reflux disease
     Dosage: 10 MG/DAY
     Route: 048
  59. ALENDRONATE [Concomitant]
     Active Substance: ALENDRONATE SODIUM
     Indication: Osteoporosis
     Dosage: 35 MG, PER WEEK
     Route: 048

REACTIONS (6)
  - Myasthenia gravis [Recovered/Resolved]
  - Malaise [Recovering/Resolving]
  - Somnolence [Recovering/Resolving]
  - Myasthenia gravis [Recovered/Resolved]
  - Therapy cessation [Unknown]
  - Intentional dose omission [Unknown]

NARRATIVE: CASE EVENT DATE: 20230106
